FAERS Safety Report 16445914 (Version 1)
Quarter: 2019Q2

REPORT INFORMATION
  Report Type: Spontaneous
  Country: ES (occurrence: ES)
  Receive Date: 20190618
  Receipt Date: 20190618
  Transmission Date: 20190711
  Serious: Yes (Other)
  Sender: FDA-Public Use
  Company Number: ES-MYLANLABS-2019M1056004

PATIENT
  Age: 62 Year
  Sex: Male

DRUGS (9)
  1. ZYPREXA [Interacting]
     Active Substance: OLANZAPINE
     Indication: BIPOLAR DISORDER
     Dosage: 10 MILLIGRAM, BID
     Route: 030
     Dates: start: 20181208, end: 20181209
  2. OMEPRAZOL CINFAMED [Concomitant]
     Indication: PRODUCT USED FOR UNKNOWN INDICATION
     Dosage: 20 MILLIGRAM, QD
     Route: 048
     Dates: start: 20180718
  3. LOSARTAN NORMON [Concomitant]
     Indication: PRODUCT USED FOR UNKNOWN INDICATION
     Dosage: 25 MILLIGRAM, QD
     Route: 048
     Dates: start: 20180706
  4. SEROQUEL [Concomitant]
     Active Substance: QUETIAPINE FUMARATE
     Indication: PRODUCT USED FOR UNKNOWN INDICATION
     Dosage: 150 MILLIGRAM, QD
     Route: 048
     Dates: start: 20180706
  5. LEPONEX 100 MG [Suspect]
     Active Substance: CLOZAPINE
     Indication: BIPOLAR DISORDER
     Dosage: 100 MILLIGRAM, Q8H
     Route: 048
     Dates: start: 20180725
  6. LAMOTRIGINA NORMON [Concomitant]
     Indication: PRODUCT USED FOR UNKNOWN INDICATION
     Dosage: 125 MILLIGRAM, BID
     Route: 048
     Dates: start: 20180718
  7. LORMETAZEPAM CINFA [Concomitant]
     Indication: PRODUCT USED FOR UNKNOWN INDICATION
     Dosage: 2 MILLIGRAM, QD
     Route: 048
     Dates: start: 20180628
  8. ORFIDAL [Concomitant]
     Active Substance: LORAZEPAM
     Indication: PRODUCT USED FOR UNKNOWN INDICATION
     Dosage: 1 MILLIGRAM, BID
     Route: 048
     Dates: start: 20180628
  9. RIVOTRIL [Concomitant]
     Active Substance: CLONAZEPAM
     Indication: PRODUCT USED FOR UNKNOWN INDICATION
     Dosage: 2 MILLIGRAM, QD
     Route: 048
     Dates: start: 20180628

REACTIONS (3)
  - Neuroleptic malignant syndrome [Recovered/Resolved]
  - Product use in unapproved indication [Unknown]
  - Drug interaction [Unknown]

NARRATIVE: CASE EVENT DATE: 20180725
